FAERS Safety Report 8912910 (Version 1)
Quarter: 2012Q4

REPORT INFORMATION
  Report Type: 
  Country: IN (occurrence: IN)
  Receive Date: 20121115
  Receipt Date: 20121115
  Transmission Date: 20130627
  Serious: Yes (Hospitalization)
  Sender: FDA-Public Use
  Company Number: IN-PERRIGO-12IN009639

PATIENT
  Age: 6 Year
  Sex: Male
  Weight: 24 kg

DRUGS (3)
  1. MIDAZOLAM HCL [Suspect]
     Indication: SEDATIVE THERAPY
     Dosage: 0.5 mg/kg, single
     Route: 048
  2. ERYTHROMYCIN [Suspect]
     Indication: PYREXIA
     Dosage: Unknown, Unknown
     Route: 048
  3. PARACETAMOL [Concomitant]
     Indication: PYREXIA
     Dosage: Unknown, Unknown
     Route: 048

REACTIONS (2)
  - Drug effect prolonged [Recovered/Resolved]
  - Drug interaction [Recovered/Resolved]
